FAERS Safety Report 8494956-8 (Version None)
Quarter: 2012Q2

REPORT INFORMATION
  Report Type: 
  Country: None (occurrence: None)
  Receive Date: 20120628
  Receipt Date: 20120612
  Transmission Date: 20120825
  Serious: Yes (Death, Hospitalization, Other)
  Sender: FDA-Public Use
  Company Number: SAN_00079_2012

PATIENT
  Age: 69 Year
  Sex: Male

DRUGS (9)
  1. GLIPIZIDE [Concomitant]
  2. CLOPIDOGREL [Concomitant]
  3. METOPROLOL TARTRATE [Concomitant]
  4. SERTRALINE HYDROCHLORIDE [Concomitant]
  5. METFORMIN HYDROCHLORIDE [Suspect]
     Indication: PRODUCT USED FOR UNKNOWN INDICATION
     Dosage: (850 MG TID ORAL)
     Route: 048
  6. OMEPRAZOLE [Concomitant]
  7. GABAPENTIN [Concomitant]
  8. LISINOPRIL [Concomitant]
  9. ROSUVASTATIN [Concomitant]

REACTIONS (17)
  - DRUG LEVEL INCREASED [None]
  - HYPERHIDROSIS [None]
  - OCCULT BLOOD POSITIVE [None]
  - BLOOD PRESSURE DECREASED [None]
  - FAECALOMA [None]
  - GENERAL PHYSICAL HEALTH DETERIORATION [None]
  - LACTIC ACIDOSIS [None]
  - RESPIRATORY RATE INCREASED [None]
  - WHITE BLOOD CELL COUNT INCREASED [None]
  - CARDIO-RESPIRATORY ARREST [None]
  - BODY TEMPERATURE DECREASED [None]
  - SEPSIS [None]
  - RENAL FAILURE ACUTE [None]
  - MENTAL DISORDER [None]
  - BLOOD GLUCOSE INCREASED [None]
  - LUNG INFILTRATION [None]
  - HYPERKALAEMIA [None]
